FAERS Safety Report 8284718-9 (Version None)
Quarter: 2012Q2

REPORT INFORMATION
  Report Type: 
  Country: None (occurrence: None)
  Receive Date: 20120413
  Receipt Date: 20110718
  Transmission Date: 20120825
  Serious: No
  Sender: FDA-Public Use
  Company Number: US-ASTRAZENECA-2011SE38700

PATIENT
  Age: 55 Year
  Sex: Male
  Weight: 83.9 kg

DRUGS (5)
  1. PRILOSEC [Suspect]
     Route: 048
  2. NEXIUM [Suspect]
     Indication: GASTROOESOPHAGEAL REFLUX DISEASE
     Route: 048
     Dates: start: 20110627
  3. NEURONTIN [Concomitant]
     Indication: SURGERY
  4. MEVACORE [Concomitant]
     Indication: HYPERCHOLESTEROLAEMIA
  5. NEURONTIN [Concomitant]
     Indication: PAIN

REACTIONS (6)
  - TENDERNESS [None]
  - OROPHARYNGEAL PAIN [None]
  - DRUG INEFFECTIVE [None]
  - HEADACHE [None]
  - DIZZINESS [None]
  - INFLUENZA [None]
